FAERS Safety Report 6023625-9 (Version None)
Quarter: 2008Q4

REPORT INFORMATION
  Report Type: 
  Country: None (occurrence: None)
  Receive Date: 20081230
  Receipt Date: 20081221
  Transmission Date: 20090506
  Serious: Yes (Other)
  Sender: FDA-Public Use
  Company Number: EG-JNJFOC-20081206205

PATIENT
  Age: 57 Year
  Sex: Female

DRUGS (3)
  1. RISPERDAL [Suspect]
     Indication: PSYCHOTIC DISORDER
     Route: 065
  2. CIPRALEX [Concomitant]
     Route: 065
  3. DRUG UNKNOWN [Concomitant]
     Route: 065

REACTIONS (1)
  - SCLERODERMA [None]
